FAERS Safety Report 16055478 (Version 1)
Quarter: 2019Q1

REPORT INFORMATION
  Report Type: Spontaneous
  Country: SE (occurrence: SE)
  Receive Date: 20190311
  Receipt Date: 20190311
  Transmission Date: 20190418
  Serious: Yes (Life-Threatening, Hospitalization)
  Sender: FDA-Public Use
  Company Number: SE-TEVA-2019-SE-1021241

PATIENT
  Age: 75 Year
  Sex: Male

DRUGS (1)
  1. ATORVASTATIN [Suspect]
     Active Substance: ATORVASTATIN
     Indication: HYPERLIPIDAEMIA
     Dates: start: 20170403, end: 20181225

REACTIONS (5)
  - Blood creatine phosphokinase MB increased [Recovering/Resolving]
  - Bulbar palsy [Recovering/Resolving]
  - Transaminases increased [Recovering/Resolving]
  - Respiratory failure [Recovering/Resolving]
  - Dysphagia [Recovering/Resolving]

NARRATIVE: CASE EVENT DATE: 20181225
